FAERS Safety Report 25273302 (Version 1)
Quarter: 2025Q2

REPORT INFORMATION
  Report Type: Spontaneous
  Country: US (occurrence: US)
  Receive Date: 20250506
  Receipt Date: 20250506
  Transmission Date: 20250716
  Serious: No
  Sender: AMNEAL
  Company Number: US-AMNEAL PHARMACEUTICALS-2024-AMRX-03281

PATIENT
  Sex: Female
  Weight: 8.571 kg

DRUGS (5)
  1. VIGABATRIN [Suspect]
     Active Substance: VIGABATRIN
     Indication: Infantile spasms
     Dosage: VIGABATRIN 500MG POWDER PACKET 1S, MIX 1 PACKET IN 10 ML OF WATER AND GIVE/TAKE 4 ML (200 MG) TWICE
     Route: 065
     Dates: start: 20240711
  2. VIGABATRIN [Suspect]
     Active Substance: VIGABATRIN
     Dosage: VIGABATRIN 500MG POWDER PACKET 1S, THEN MIX 1 PACKET IN 10 ML OF WATER AND GIVE/TAKE 8 ML (400 MG) T
     Route: 065
  3. VIGABATRIN [Suspect]
     Active Substance: VIGABATRIN
     Dosage: VIGABATRIN 500MG POWDER PACKET 1S, THEN MIX 2 PACKETS IN 20 ML OF WATER AND GIVE/TAKE 12 ML (600 MG)
     Route: 065
  4. VITAMIN D3 [Concomitant]
     Active Substance: CHOLECALCIFEROL
     Indication: Product used for unknown indication
     Route: 065
  5. ZONISAMIDE [Concomitant]
     Active Substance: ZONISAMIDE
     Indication: Product used for unknown indication
     Route: 065

REACTIONS (1)
  - Urticaria [Unknown]
